FAERS Safety Report 9696849 (Version 3)
Quarter: 2015Q3

REPORT INFORMATION
  Report Type: Spontaneous
  Country: US (occurrence: US)
  Receive Date: 20131119
  Receipt Date: 20150803
  Transmission Date: 20151125
  Serious: No
  Sender: FDA-Public Use
  Company Number: US-GILEAD-2007-0013547

PATIENT
  Age: 72 Year
  Sex: Female

DRUGS (10)
  1. CELEBREX [Concomitant]
     Active Substance: CELECOXIB
     Route: 048
  2. LETAIRIS [Suspect]
     Active Substance: AMBRISENTAN
     Indication: PULMONARY ARTERIAL HYPERTENSION
     Route: 048
     Dates: start: 20070808
  3. COZAAR [Concomitant]
     Active Substance: LOSARTAN POTASSIUM
     Route: 048
  4. VALTREX [Concomitant]
     Active Substance: VALACYCLOVIR HYDROCHLORIDE
     Route: 048
  5. URSODIOL. [Concomitant]
     Active Substance: URSODIOL
     Route: 048
  6. ENBREL [Concomitant]
     Active Substance: ETANERCEPT
     Route: 058
  7. NEXIUM [Concomitant]
     Active Substance: ESOMEPRAZOLE MAGNESIUM
     Route: 048
  8. CHROMOGEN [Concomitant]
     Route: 048
  9. NORVASC [Concomitant]
     Active Substance: AMLODIPINE BESYLATE
     Route: 048
  10. VIVELLE [Concomitant]
     Active Substance: ESTRADIOL
     Route: 061

REACTIONS (6)
  - Dizziness [Unknown]
  - Dyspnoea [Unknown]
  - Asthenia [Unknown]
  - Influenza like illness [Unknown]
  - Palpitations [Unknown]
  - Headache [Unknown]
